FAERS Safety Report 20020285 (Version 3)
Quarter: 2022Q2

REPORT INFORMATION
  Report Type: Spontaneous
  Country: HU (occurrence: HU)
  Receive Date: 20211101
  Receipt Date: 20220615
  Transmission Date: 20220721
  Serious: Yes (Death, Life-Threatening, Hospitalization, Other)
  Sender: FDA-Public Use
  Company Number: HU-Accord-240961

PATIENT
  Age: 68 Year
  Sex: Male
  Weight: 74.2 kg

DRUGS (3)
  1. RITUXIMAB [Suspect]
     Active Substance: RITUXIMAB
     Dosage: 375 MG/M2, 1Q2W REGIMEN: 1
     Route: 042
     Dates: start: 20210906, end: 20210906
  2. OXALIPLATIN [Suspect]
     Active Substance: OXALIPLATIN
     Dosage: 10 MG/M2 1Q2W REGIMEN: 1
     Route: 042
     Dates: start: 20210907, end: 20210907
  3. GEMCITABINE [Suspect]
     Active Substance: GEMCITABINE
     Dosage: 1000 MG/M2 1Q2W REGIMEN: 1
     Route: 042
     Dates: start: 20210907, end: 20210907

REACTIONS (1)
  - Neutropenic sepsis [Fatal]

NARRATIVE: CASE EVENT DATE: 20210914
